FAERS Safety Report 16420979 (Version 1)
Quarter: 2019Q2

REPORT INFORMATION
  Report Type: Spontaneous
  Country: GB (occurrence: GB)
  Receive Date: 20190612
  Receipt Date: 20190612
  Transmission Date: 20190711
  Serious: Yes (Other)
  Sender: FDA-Public Use
  Company Number: GB-CANTON LABORATORIES, LLC-2068139

PATIENT
  Age: 65 Year
  Sex: Female
  Weight: 92.07 kg

DRUGS (2)
  1. TUMERIC [Concomitant]
     Active Substance: HERBALS\TURMERIC
     Route: 065
  2. NAPROSYN [Suspect]
     Active Substance: NAPROXEN
     Indication: OSTEOARTHRITIS
     Route: 048
     Dates: start: 20170101, end: 20190502

REACTIONS (1)
  - Muscle spasms [Recovering/Resolving]
